FAERS Safety Report 4491266-0 (Version None)
Quarter: 2004Q4

REPORT INFORMATION
  Report Type: 
  Country: None (occurrence: None)
  Receive Date: 20041101
  Receipt Date: 20041101
  Transmission Date: 20050328
  Serious: Yes (Hospitalization)
  Sender: FDA-Public Use
  Company Number: None

PATIENT
  Age: 54 Year
  Sex: Female
  Weight: 63.5036 kg

DRUGS (1)
  1. TEMODAR [Suspect]
     Indication: METASTATIC MALIGNANT MELANOMA
     Dosage: 130 MG PO QD X 21 DAYS
     Route: 048
     Dates: start: 20041018, end: 20041022

REACTIONS (3)
  - DISEASE PROGRESSION [None]
  - HEPATIC FAILURE [None]
  - PAIN [None]
